FAERS Safety Report 8230896-7 (Version None)
Quarter: 2012Q1

REPORT INFORMATION
  Report Type: 
  Country: None (occurrence: None)
  Receive Date: 20120320
  Receipt Date: 20120306
  Transmission Date: 20120608
  Serious: Yes (Hospitalization)
  Sender: FDA-Public Use
  Company Number: 2012SP012627

PATIENT
  Age: 78 Year
  Sex: Female

DRUGS (11)
  1. ACECLOFENAC (ACECLOFENAC) [Suspect]
     Indication: OSTEOARTHRITIS
     Dosage: 100 MG;QD;PO
     Route: 048
     Dates: start: 20090101
  2. PAROXETINE HCL [Concomitant]
  3. LOVASTATIN [Concomitant]
  4. VALSARTAN  AND HYDROCHLOROTHIAZIDE [Concomitant]
  5. HYDROCHLOROTHIAZIDE [Concomitant]
  6. DESLORATADINE [Suspect]
     Indication: RHINITIS ALLERGIC
     Dosage: 5 MG; QD; PO
     Route: 048
  7. ARCOXIA [Suspect]
     Indication: RHINITIS ALLERGIC
     Dosage: 60 MG;QD;PO
     Route: 048
     Dates: start: 20090101
  8. COUMADIN [Suspect]
     Indication: ATRIAL FIBRILLATION
     Dosage: 5 MG;PRN;PO
     Route: 048
     Dates: start: 20090101, end: 20120201
  9. METFORMIN HCL [Concomitant]
  10. ARCOXIA [Suspect]
     Indication: OSTEOARTHRITIS
     Dosage: 60 MG;QD;PO
     Route: 048
     Dates: start: 20090101
  11. LANSOPRAZOLE [Concomitant]

REACTIONS (5)
  - INTERNATIONAL NORMALISED RATIO INCREASED [None]
  - ANAEMIA [None]
  - DRUG ABUSER [None]
  - GASTROINTESTINAL EROSION [None]
  - GASTRIC ULCER HAEMORRHAGE [None]
